FAERS Safety Report 7980595-1 (Version None)
Quarter: 2011Q4

REPORT INFORMATION
  Report Type: 
  Country: None (occurrence: None)
  Receive Date: 20111214
  Receipt Date: 20111209
  Transmission Date: 20120403
  Serious: Yes (Life-Threatening, Hospitalization, Other)
  Sender: FDA-Public Use
  Company Number: CN-CELGENEUS-035-C5013-11040889

PATIENT
  Sex: Male
  Weight: 45 kg

DRUGS (16)
  1. DEXAMETHASONE [Suspect]
     Indication: MULTIPLE MYELOMA
     Dosage: 40 MILLIGRAM
     Route: 065
     Dates: start: 20110107
  2. AMBROXOL [Concomitant]
     Indication: PROPHYLAXIS
     Dosage: 90 MILLIGRAM
     Route: 041
     Dates: start: 20110419, end: 20110421
  3. CEFOXITIN [Suspect]
     Indication: INFECTION PROPHYLAXIS
     Dosage: 2 GRAM
     Route: 041
     Dates: start: 20110328, end: 20110330
  4. NEUPOGEN [Concomitant]
     Route: 065
     Dates: start: 20110328, end: 20110328
  5. CEFUROXIME [Concomitant]
     Indication: INFECTION
     Dosage: 2.25 GRAM
     Route: 041
     Dates: start: 20110419, end: 20110421
  6. CEFUROXIME [Concomitant]
     Indication: INFECTION PROPHYLAXIS
     Dosage: 2 GRAM
     Route: 041
     Dates: start: 20110427
  7. DICYNONE [Concomitant]
     Indication: EPISTAXIS
     Dosage: 2 GRAM
     Route: 045
     Dates: start: 20110328, end: 20110330
  8. DEXAMETHASONE [Suspect]
     Dosage: 40 MILLIGRAM
     Route: 065
     Dates: start: 20110406, end: 20110428
  9. LEUCOGEN [Concomitant]
     Dosage: 120 MICROGRAM
     Route: 048
     Dates: start: 20110321, end: 20110419
  10. OMEPRAZOLE [Concomitant]
     Indication: PROPHYLAXIS
     Dosage: 40 MILLIGRAM
     Route: 041
     Dates: start: 20110419, end: 20110421
  11. COZAAR [Concomitant]
     Indication: HYPERTENSION
     Route: 065
  12. NEUPOGEN [Concomitant]
     Route: 065
     Dates: start: 20110320, end: 20110320
  13. CEFPROZIL [Concomitant]
     Indication: INFECTION PROPHYLAXIS
     Dosage: 1 GRAM
     Route: 048
     Dates: start: 20110401, end: 20110414
  14. LENALIDOMIDE [Suspect]
     Indication: MULTIPLE MYELOMA
     Route: 048
     Dates: start: 20110107
  15. LENALIDOMIDE [Suspect]
     Route: 048
     Dates: start: 20110303, end: 20110428
  16. ANTITHROMBOTIC AGENTS [Concomitant]
     Indication: THROMBOSIS PROPHYLAXIS
     Route: 065

REACTIONS (3)
  - RENAL FAILURE [None]
  - HYPERKALAEMIA [None]
  - RENAL FAILURE ACUTE [None]
